FAERS Safety Report 6196006-5 (Version None)
Quarter: 2009Q2

REPORT INFORMATION
  Report Type: 
  Country: None (occurrence: None)
  Receive Date: 20090520
  Receipt Date: 20040928
  Transmission Date: 20091009
  Serious: Yes (Death, Hospitalization)
  Sender: FDA-Public Use
  Company Number: NL-ROCHE-597577

PATIENT
  Sex: Male

DRUGS (7)
  1. CAPECITABINE [Suspect]
     Dosage: AS PER PROTOCOL FREQUENCY: BID ON DAY 1-14
     Route: 048
     Dates: start: 20040519, end: 20040601
  2. IRINOTECAN HCL [Suspect]
     Route: 042
     Dates: start: 20040519, end: 20040601
  3. LOPERAMIDE HCL [Concomitant]
     Dates: start: 20040513, end: 20040516
  4. RAMIPRIL [Concomitant]
     Dates: start: 20030301
  5. LIPITOR [Concomitant]
     Dates: start: 20030301
  6. HYDROCHLOROTHIAZIDE [Concomitant]
  7. LABETALOL HCL [Concomitant]

REACTIONS (4)
  - DIARRHOEA [None]
  - FEBRILE NEUTROPENIA [None]
  - MYOCARDIAL ISCHAEMIA [None]
  - PYREXIA [None]
